FAERS Safety Report 22107594 (Version 1)
Quarter: 2023Q1

REPORT INFORMATION
  Report Type: Spontaneous
  Country: GB (occurrence: GB)
  Receive Date: 20230317
  Receipt Date: 20230317
  Transmission Date: 20230418
  Serious: Yes (Disabling, Other)
  Sender: FDA-Public Use
  Company Number: GB-MHRA-MED-202303081731042970-PJRVY

PATIENT
  Age: 75 Year
  Sex: Female

DRUGS (2)
  1. ALENDRONIC ACID [Suspect]
     Active Substance: ALENDRONIC ACID
     Indication: Adverse drug reaction
     Route: 065
     Dates: start: 20230224, end: 20230227
  2. ALENDRONIC ACID [Suspect]
     Active Substance: ALENDRONIC ACID
     Indication: Osteoporosis

REACTIONS (5)
  - Medication error [Unknown]
  - Dysphagia [Recovering/Resolving]
  - Abdominal pain upper [Recovering/Resolving]
  - Nausea [Recovered/Resolved with Sequelae]
  - Retching [Recovered/Resolved with Sequelae]

NARRATIVE: CASE EVENT DATE: 20230225
